FAERS Safety Report 7678577-2 (Version None)
Quarter: 2011Q3

REPORT INFORMATION
  Report Type: 
  Country: None (occurrence: None)
  Receive Date: 20110811
  Receipt Date: 20110803
  Transmission Date: 20111222
  Serious: Yes (Hospitalization)
  Sender: FDA-Public Use
  Company Number: PHHY2011PT70544

PATIENT
  Age: 65 Year
  Sex: Female

DRUGS (1)
  1. CIPROFLOXACIN [Suspect]
     Indication: SKIN ULCER

REACTIONS (9)
  - PUSTULAR PSORIASIS [None]
  - GENERALISED ERYTHEMA [None]
  - RASH [None]
  - PYREXIA [None]
  - BLISTER [None]
  - NEUTROPHILIA [None]
  - LEUKOCYTOSIS [None]
  - RASH ERYTHEMATOUS [None]
  - RASH PUSTULAR [None]
